FAERS Safety Report 11363239 (Version 2)
Quarter: 2015Q3

REPORT INFORMATION
  Report Type: Spontaneous
  Country: GB (occurrence: None)
  Receive Date: 20150807
  Receipt Date: 20150921
  Transmission Date: 20151125
  Serious: Yes (Other)
  Sender: FDA-Public Use
  Company Number: 2015GR_BP004715

PATIENT
  Age: 50 Year
  Sex: Male
  Weight: 80 kg

DRUGS (3)
  1. GAVISCON [Concomitant]
     Active Substance: ALUMINUM HYDROXIDE\MAGNESIUM CARBONATE
  2. ESOMEPRAZOLE [Concomitant]
     Active Substance: ESOMEPRAZOLE
  3. FINASTERIDE. [Suspect]
     Active Substance: FINASTERIDE
     Indication: PROSTATOMEGALY
     Route: 048
     Dates: start: 20150608, end: 20150720

REACTIONS (7)
  - Headache [None]
  - Ejaculation disorder [None]
  - Palpitations [None]
  - Abdominal discomfort [None]
  - Fatigue [None]
  - Asthenia [None]
  - Dyspnoea [None]

NARRATIVE: CASE EVENT DATE: 20150717
